FAERS Safety Report 20211544 (Version 1)
Quarter: 2021Q4

REPORT INFORMATION
  Report Type: Report from Study
  Country: US (occurrence: US)
  Receive Date: 20211221
  Receipt Date: 20211221
  Transmission Date: 20220303
  Serious: No
  Sender: FDA-Public Use
  Company Number: US-NOVARTISTESTPH-NVSC2021US291763

PATIENT
  Age: 33 Year
  Sex: Male
  Weight: 99.79 kg

DRUGS (1)
  1. EGATEN [Suspect]
     Active Substance: TRICLABENDAZOLE
     Indication: Fascioliasis
     Route: 048
     Dates: start: 20211113, end: 20211203

REACTIONS (1)
  - Rash [Unknown]

NARRATIVE: CASE EVENT DATE: 20211211
